FAERS Safety Report 26079759 (Version 1)
Quarter: 2025Q4

REPORT INFORMATION
  Report Type: Report from Study
  Country: CA (occurrence: CA)
  Receive Date: 20251123
  Receipt Date: 20251123
  Transmission Date: 20260117
  Serious: Yes (Hospitalization)
  Sender: ABBVIE
  Company Number: CA-ABBVIE-6007288

PATIENT
  Age: 79 Year
  Sex: Male

DRUGS (3)
  1. LUPRON [Suspect]
     Active Substance: LEUPROLIDE ACETATE
     Indication: Prostate cancer
     Route: 030
     Dates: start: 20230814
  2. LUPRON [Suspect]
     Active Substance: LEUPROLIDE ACETATE
     Dosage: FORM STRENGTH- 22.5 MG?DOSE FORM - POWDER AND SOLVENT FOR SUSPENSION FOR INJECTION IN PRE-FILLED ...
     Route: 065
  3. DENOSUMAB [Concomitant]
     Active Substance: DENOSUMAB
     Indication: Product used for unknown indication

REACTIONS (5)
  - Foot operation [Unknown]
  - Lower limb fracture [Unknown]
  - Hospitalisation [Unknown]
  - Infection [Unknown]
  - Medication error [Unknown]

NARRATIVE: CASE EVENT DATE: 20240101
